FAERS Safety Report 13911037 (Version 1)
Quarter: 2017Q3

REPORT INFORMATION
  Report Type: Spontaneous
  Country: HR (occurrence: HR)
  Receive Date: 20170828
  Receipt Date: 20170828
  Transmission Date: 20171127
  Serious: Yes (Other)
  Sender: FDA-Public Use
  Company Number: HR-PFIZER INC-2017366579

PATIENT
  Age: 19 Year
  Sex: Female

DRUGS (2)
  1. XANAX [Suspect]
     Active Substance: ALPRAZOLAM
     Dosage: 10 MG, (20 X 0.5 MG)
     Route: 048
     Dates: start: 20170723, end: 20170723
  2. SANVAL [Suspect]
     Active Substance: ZOLPIDEM TARTRATE
     Dosage: 50 MG, (10 X 5 MG)
     Route: 048
     Dates: start: 20170723, end: 20170723

REACTIONS (2)
  - Intentional overdose [Unknown]
  - Suicide attempt [Unknown]

NARRATIVE: CASE EVENT DATE: 20170723
